FAERS Safety Report 7730744-5 (Version None)
Quarter: 2011Q3

REPORT INFORMATION
  Report Type: 
  Country: None (occurrence: None)
  Receive Date: 20110901
  Receipt Date: 20110901
  Transmission Date: 20111222
  Serious: No
  Sender: FDA-Public Use
  Company Number: None

PATIENT
  Age: 68 Year
  Sex: Male

DRUGS (14)
  1. PRILOSEC [Concomitant]
  2. REVLIMID [Suspect]
     Indication: MULTIPLE MYELOMA
     Dosage: 20MG QDX21D/28D ORALLY
     Route: 048
     Dates: start: 20110101, end: 20110701
  3. PAXIL [Concomitant]
  4. REVLIMID [Concomitant]
  5. COREG [Concomitant]
  6. COUMADIN [Concomitant]
  7. ZETIA [Concomitant]
  8. PROAIR HFA [Concomitant]
  9. ZESTRIL [Concomitant]
  10. ADVAIR DISKUS 100/50 [Concomitant]
  11. LASIX [Concomitant]
  12. AMBIEN [Concomitant]
  13. ZOVIRAX [Concomitant]
  14. DECADRON [Concomitant]

REACTIONS (3)
  - INSOMNIA [None]
  - DISEASE PROGRESSION [None]
  - FATIGUE [None]
